FAERS Safety Report 23745338 (Version 2)
Quarter: 2024Q2

REPORT INFORMATION
  Report Type: Spontaneous
  Country: GR (occurrence: GR)
  Receive Date: 20240416
  Receipt Date: 20240429
  Transmission Date: 20240716
  Serious: Yes (Hospitalization)
  Sender: FDA-Public Use
  Company Number: GR-BoehringerIngelheim-2024-BI-021073

PATIENT
  Sex: Male

DRUGS (1)
  1. PRADAXA [Suspect]
     Active Substance: DABIGATRAN ETEXILATE MESYLATE
     Indication: Atrial fibrillation

REACTIONS (7)
  - Disorientation [Unknown]
  - Dysarthria [Unknown]
  - Troponin increased [Unknown]
  - Cerebral ischaemia [Unknown]
  - Aortic arteriosclerosis [Unknown]
  - Aortic thrombosis [Unknown]
  - Coronary artery aneurysm [Unknown]
